FAERS Safety Report 6731894-2 (Version None)
Quarter: 2010Q2

REPORT INFORMATION
  Report Type: 
  Country: None (occurrence: None)
  Receive Date: 20100519
  Receipt Date: 20100513
  Transmission Date: 20101027
  Serious: Yes (Hospitalization)
  Sender: FDA-Public Use
  Company Number: JP-SANOFI-AVENTIS-2010SA027701

PATIENT
  Age: 46 Year
  Sex: Male

DRUGS (16)
  1. ARAVA [Suspect]
     Indication: RHEUMATOID ARTHRITIS
     Route: 048
     Dates: start: 20090808, end: 20091127
  2. QUESTRAN [Suspect]
     Indication: DRUG DETOXIFICATION
     Route: 048
     Dates: start: 20091128, end: 20091130
  3. PLATIBIT [Concomitant]
     Indication: OSTEOPOROSIS
     Route: 048
  4. ISCOTIN [Concomitant]
     Route: 048
  5. NEUROVITAN [Concomitant]
     Indication: HYPOVITAMINOSIS
     Route: 048
  6. CYTOTEC [Concomitant]
     Indication: GASTRIC ULCER
     Route: 048
  7. FAMOTIDINE [Concomitant]
     Indication: GASTRIC ULCER
     Route: 048
  8. LIPITOR [Concomitant]
     Indication: HYPERLIPIDAEMIA
     Route: 048
  9. VIBRAMYCIN TABS [Concomitant]
     Indication: PROPHYLAXIS
     Route: 048
  10. PREDNISOLONE [Concomitant]
     Indication: RHEUMATOID ARTHRITIS
     Route: 048
  11. FOLIC ACID [Concomitant]
     Indication: PROPHYLAXIS
     Route: 048
  12. BACTRAMIN [Concomitant]
     Indication: PROPHYLAXIS
     Dosage: 3 TABLETS/DAY ON MONDAYS AND FRIDAYS.
     Route: 048
  13. ALL OTHER THERAPEUTIC PRODUCTS [Concomitant]
     Indication: GASTRIC ULCER
     Route: 048
  14. ETANERCEPT [Concomitant]
     Indication: RHEUMATOID ARTHRITIS
     Route: 058
  15. METHOTREXATE [Concomitant]
     Indication: RHEUMATOID ARTHRITIS
     Dosage: 20 MG ON SATURDAYS AND SUNDAYS
     Route: 048
     Dates: start: 20090905
  16. ALFAROL [Concomitant]
     Indication: OSTEOPOROSIS
     Route: 048
     Dates: start: 20091128

REACTIONS (6)
  - ALANINE AMINOTRANSFERASE INCREASED [None]
  - ASPARTATE AMINOTRANSFERASE INCREASED [None]
  - DIARRHOEA [None]
  - GAMMA-GLUTAMYLTRANSFERASE INCREASED [None]
  - GASTROENTERITIS [None]
  - HISTIOCYTOSIS HAEMATOPHAGIC [None]
